FAERS Safety Report 8420162-9 (Version None)
Quarter: 2012Q2

REPORT INFORMATION
  Report Type: 
  Country: None (occurrence: None)
  Receive Date: 20120323
  Receipt Date: 20111208
  Transmission Date: 20120825
  Serious: Yes (Other)
  Sender: FDA-Public Use
  Company Number: 163-21880-11121281

PATIENT
  Age: 55 Year
  Sex: Male

DRUGS (4)
  1. REVLIMID [Suspect]
     Indication: MYELODYSPLASTIC SYNDROME
     Dosage: 25 MG, DAILY X 21 OF 28 DAYS, PO
     Route: 048
     Dates: start: 20111121
  2. FLONASE [Concomitant]
  3. PROCRIT [Concomitant]
  4. CIALIS [Concomitant]

REACTIONS (4)
  - RASH GENERALISED [None]
  - FATIGUE [None]
  - HEADACHE [None]
  - HAEMOGLOBIN DECREASED [None]
